FAERS Safety Report 5175709-5 (Version None)
Quarter: 2006Q4

REPORT INFORMATION
  Report Type: 
  Country: None (occurrence: None)
  Receive Date: 20061215
  Receipt Date: 20060804
  Transmission Date: 20070319
  Serious: Yes (Hospitalization)
  Sender: FDA-Public Use
  Company Number: US-ABBOTT-06P-163-0339526-00

PATIENT
  Sex: Female
  Weight: 68.1 kg

DRUGS (7)
  1. HUMIRA [Suspect]
     Indication: RHEUMATOID ARTHRITIS
     Route: 058
     Dates: start: 20040101, end: 20060803
  2. LEVOTHYROXINE SODIUM [Concomitant]
     Indication: HYPOTHYROIDISM
  3. FOLIC ACID [Concomitant]
     Indication: VITAMIN SUPPLEMENTATION
  4. ZETIA [Concomitant]
     Indication: LIPIDS INCREASED
  5. PREDNISONE TAB [Concomitant]
     Indication: RHEUMATOID ARTHRITIS
  6. ARTHROTEC [Concomitant]
     Indication: RHEUMATOID ARTHRITIS
  7. BONIVA [Concomitant]
     Indication: OSTEOPOROSIS

REACTIONS (3)
  - BRAIN NEOPLASM [None]
  - CONVULSION [None]
  - SYNCOPE [None]
